FAERS Safety Report 8584873-7 (Version None)
Quarter: 2012Q3

REPORT INFORMATION
  Report Type: 
  Country: None (occurrence: None)
  Receive Date: 20120810
  Receipt Date: 20120727
  Transmission Date: 20120928
  Serious: Yes (Hospitalization)
  Sender: FDA-Public Use
  Company Number: IT-ELI_LILLY_AND_COMPANY-IT200905004161

PATIENT
  Sex: Female

DRUGS (4)
  1. TRIAC [Concomitant]
     Indication: WEIGHT LOSS DIET
     Dosage: 2.4 MG, QD
     Route: 048
     Dates: start: 20090201, end: 20090428
  2. PSEUDOEPHEDRINE HCL [Concomitant]
     Indication: WEIGHT LOSS DIET
     Dosage: 75 MG, QD
     Route: 048
     Dates: start: 20090201, end: 20090428
  3. CLORAZEPATE DIPOTASSIUM [Concomitant]
     Indication: WEIGHT LOSS DIET
     Dosage: 7.5 MG, QD
     Route: 048
     Dates: start: 20090201, end: 20090428
  4. PROZAC [Suspect]
     Indication: WEIGHT LOSS DIET
     Dosage: 45 MG, QD
     Route: 048
     Dates: start: 20090201, end: 20090428

REACTIONS (6)
  - OFF LABEL USE [None]
  - PALPITATIONS [None]
  - RESTLESSNESS [None]
  - ANXIETY [None]
  - INSOMNIA [None]
  - ASTHENIA [None]
